FAERS Safety Report 8455379-0 (Version None)
Quarter: 2012Q2

REPORT INFORMATION
  Report Type: 
  Country: None (occurrence: None)
  Receive Date: 20120621
  Receipt Date: 20120615
  Transmission Date: 20120825
  Serious: Yes (Other)
  Sender: FDA-Public Use
  Company Number: BR-PFIZER INC-2012144866

PATIENT
  Age: 45 Year
  Sex: Male
  Weight: 76 kg

DRUGS (2)
  1. LYRICA [Suspect]
     Indication: NEURALGIA
     Dosage: 75 MG, 2X/DAY
     Route: 048
     Dates: start: 20120401
  2. DECADRON [Concomitant]
     Indication: NEURALGIA
     Dosage: UNK
     Dates: start: 20120601

REACTIONS (2)
  - PAIN [None]
  - INTERVERTEBRAL DISC PROTRUSION [None]
